FAERS Safety Report 4666492-8 (Version None)
Quarter: 2005Q2

REPORT INFORMATION
  Report Type: 
  Country: None (occurrence: None)
  Receive Date: 20050518
  Receipt Date: 20050502
  Transmission Date: 20051028
  Serious: Yes (Other)
  Sender: FDA-Public Use
  Company Number: 200503707

PATIENT

DRUGS (1)
  1. BOTOX [Suspect]
     Dosage: IU
     Route: 015

REACTIONS (1)
  - SIMPLE PARTIAL SEIZURES [None]
